FAERS Safety Report 9543250 (Version 3)
Quarter: 2013Q3

REPORT INFORMATION
  Report Type: Report from Study
  Country: DE (occurrence: DE)
  Receive Date: 20130923
  Receipt Date: 20130926
  Transmission Date: 20140515
  Serious: Yes (Hospitalization)
  Sender: FDA-Public Use
  Company Number: DE-009507513-2012SP029472

PATIENT
  Age: 55 Year
  Sex: Male
  Weight: 88 kg

DRUGS (12)
  1. RIBAVIRIN [Suspect]
     Indication: HEPATITIS C
     Dosage: 1200 MG, BID
     Route: 048
     Dates: start: 20120120, end: 20120208
  2. RIBAVIRIN [Suspect]
     Dosage: 3 DF, UNKNOWN
     Route: 048
     Dates: start: 20120209, end: 20120209
  3. RIBAVIRIN [Suspect]
     Dosage: 6 DF, UNKNOWN
     Route: 048
     Dates: start: 20120210
  4. INVESTIGATIONAL DRUG (UNSPECIFIED) [Suspect]
     Indication: HEPATITIS C
     Dosage: 90 MG, QD
     Route: 048
     Dates: start: 20120120, end: 20120209
  5. INVESTIGATIONAL DRUG (UNSPECIFIED) [Suspect]
     Dosage: 3 DF, UNKNOWN
     Route: 048
     Dates: start: 20120210, end: 20120518
  6. INVESTIGATIONAL DRUG (UNSPECIFIED) [Suspect]
     Indication: HEPATITIS C
     Dosage: 200 MG, QD
     Route: 048
     Dates: start: 20120120, end: 20120209
  7. INVESTIGATIONAL DRUG (UNSPECIFIED) [Suspect]
     Dosage: 2 DF, UNKNOWN
     Route: 048
     Dates: start: 20120210, end: 20120518
  8. INVESTIGATIONAL DRUG (UNSPECIFIED) [Suspect]
     Dosage: 2 DF, UNKNOWN
     Route: 048
     Dates: start: 20120521
  9. GS-9190 [Suspect]
     Indication: HEPATITIS C
     Dosage: 30 MG, BID
     Route: 048
     Dates: start: 20120120, end: 20120208
  10. GS-9190 [Suspect]
     Dosage: 1 DF, QD
     Route: 048
     Dates: start: 20120209, end: 20120209
  11. PEGINTERFERON ALFA-2A [Suspect]
     Indication: HEPATITIS C
     Dosage: 180 ?G, QW
     Route: 058
     Dates: start: 20120209
  12. PLACEBO (UNSPECIFIED) [Suspect]
     Indication: HEPATITIS C
     Dates: start: 20120120, end: 20120209

REACTIONS (1)
  - Pyrexia [Recovered/Resolved]
